FAERS Safety Report 21380979 (Version 2)
Quarter: 2022Q3

REPORT INFORMATION
  Report Type: Spontaneous
  Country: BR (occurrence: BR)
  Receive Date: 20220927
  Receipt Date: 20220928
  Transmission Date: 20221027
  Serious: Yes (Death)
  Sender: FDA-Public Use
  Company Number: BR-PFIZER INC-2013120555

PATIENT
  Age: 73 Year
  Sex: Female
  Weight: 58 kg

DRUGS (5)
  1. SUTENT [Suspect]
     Active Substance: SUNITINIB MALATE
     Indication: Gastrointestinal stromal tumour
     Dosage: 37.5 MG CONTINUOUS CYCLE
     Route: 048
     Dates: start: 20130406
  2. SUTENT [Suspect]
     Active Substance: SUNITINIB MALATE
     Indication: Gastrointestinal carcinoma
     Dosage: UNK
     Dates: end: 20180130
  3. DIOVAN [Concomitant]
     Active Substance: VALSARTAN
     Dosage: STRENGHT 160 MG
  4. GLICLAZIDE [Concomitant]
     Active Substance: GLICLAZIDE
     Dosage: UNK
  5. NEXIUM [Concomitant]
     Active Substance: ESOMEPRAZOLE MAGNESIUM
     Dosage: 40 MG 1 TABLET IN THE MORNING IN FASTING (UNSPECIFIED FREQUENCY)

REACTIONS (8)
  - Death [Fatal]
  - Aphthous ulcer [Recovering/Resolving]
  - Blood pressure increased [Recovering/Resolving]
  - Headache [Recovering/Resolving]
  - Abdominal pain upper [Unknown]
  - Decreased appetite [Unknown]
  - Pain in extremity [Unknown]
  - Neoplasm recurrence [Unknown]

NARRATIVE: CASE EVENT DATE: 20130401
